FAERS Safety Report 5035993-5 (Version None)
Quarter: 2006Q2

REPORT INFORMATION
  Report Type: 
  Country: None (occurrence: None)
  Receive Date: 20060526
  Receipt Date: 20060222
  Transmission Date: 20061013
  Serious: Yes (Other)
  Sender: FDA-Public Use
  Company Number: 222424

PATIENT
  Age: 64 Year
  Sex: Female
  Weight: 57.1 kg

DRUGS (2)
  1. RAPTIVA [Suspect]
     Indication: PSORIASIS
     Dosage: 0.6 ML, 1/WEEK, SUBCUTANEOUS
     Route: 058
     Dates: start: 20050207, end: 20050101
  2. TOPICAL MEDICATION (GENERIC COMPONENT(S) NOT KNOWN) [Concomitant]

REACTIONS (1)
  - SQUAMOUS CELL CARCINOMA [None]
